FAERS Safety Report 4280963-8 (Version None)
Quarter: 2004Q1

REPORT INFORMATION
  Report Type: 
  Country: None (occurrence: None)
  Receive Date: 20040127
  Receipt Date: 20040114
  Transmission Date: 20041129
  Serious: Yes (Hospitalization)
  Sender: FDA-Public Use
  Company Number: TCI2004A00127

PATIENT
  Age: 63 Year
  Sex: Male

DRUGS (8)
  1. ACTOS [Suspect]
     Indication: DIABETES MELLITUS
     Dosage: 15 MG (15 MG, 1 IN 1 D); PER ORAL
     Route: 048
     Dates: start: 20030815, end: 20031217
  2. INSULIN LISPRO [Concomitant]
  3. INSULIN HUMAN INJECTION [Concomitant]
  4. ISOPHANE [Concomitant]
  5. CILOSTAZOL [Concomitant]
  6. FAMOTIDINE [Concomitant]
  7. TEPRENONE [Concomitant]
  8. SENNA LEAF [Concomitant]

REACTIONS (3)
  - GLOMERULONEPHRITIS [None]
  - OEDEMA [None]
  - PLEURAL EFFUSION [None]
